FAERS Safety Report 7815017-4 (Version None)
Quarter: 2011Q4

REPORT INFORMATION
  Report Type: 
  Country: None (occurrence: None)
  Receive Date: 20111014
  Receipt Date: 20111003
  Transmission Date: 20120403
  Serious: Yes (Other)
  Sender: FDA-Public Use
  Company Number: FR-GLAXOSMITHKLINE-B0755024A

PATIENT
  Age: 32 Year
  Sex: Male

DRUGS (2)
  1. CIPROFIBRATE [Suspect]
     Indication: BLOOD CHOLESTEROL INCREASED
     Route: 048
     Dates: start: 20110601
  2. ACITRETIN [Suspect]
     Indication: PRODUCT USED FOR UNKNOWN INDICATION
     Dosage: 75MG PER DAY
     Route: 048
     Dates: start: 20110601

REACTIONS (2)
  - LIBIDO DECREASED [None]
  - BLOOD CHOLESTEROL INCREASED [None]
